FAERS Safety Report 5049824-0 (Version None)
Quarter: 2006Q3

REPORT INFORMATION
  Report Type: 
  Country: None (occurrence: None)
  Receive Date: 20060706
  Receipt Date: 20060626
  Transmission Date: 20061208
  Serious: Yes (Death, Other)
  Sender: FDA-Public Use
  Company Number: USA-2006-0023571

PATIENT
  Age: 32 Year
  Sex: Female

DRUGS (13)
  1. OXYCONTIN TABLETS  (OXYCODONE HYDROCHLORIDE) PROLONGED-RELEASE TABLETS [Suspect]
     Indication: BACK PAIN
     Dosage: 80 MG, Q12H,
  2. AMBIEN [Concomitant]
  3. SEROQUEL [Concomitant]
  4. BUSPAR [Concomitant]
  5. PROZAC [Concomitant]
  6. ZANAFLEX [Concomitant]
  7. FIORICET [Concomitant]
  8. DICLOFENAC (DICLOFENAC) [Concomitant]
  9. PERCOCET [Concomitant]
  10. IMITREX ^GLAXO-WELLCOME^ (SUMATRIPTAN SUCCINATE) [Concomitant]
  11. SOMA [Concomitant]
  12. TOPAMAX [Concomitant]
  13. PROMETHAZINE [Concomitant]

REACTIONS (1)
  - DRUG INTERACTION [None]
